FAERS Safety Report 20535248 (Version 1)
Quarter: 2022Q1

REPORT INFORMATION
  Report Type: Spontaneous
  Country: JP (occurrence: JP)
  Receive Date: 20220302
  Receipt Date: 20220302
  Transmission Date: 20220423
  Serious: Yes (Death)
  Sender: FDA-Public Use
  Company Number: JP-MSD-2202JPN003129J

PATIENT
  Age: 100 Year
  Sex: Male

DRUGS (8)
  1. MOLNUPIRAVIR [Suspect]
     Active Substance: MOLNUPIRAVIR
     Indication: COVID-19 treatment
     Dosage: 800 MILLIGRAM, BID
     Route: 048
     Dates: start: 20220210, end: 20220214
  2. CALONAL [Concomitant]
     Active Substance: ACETAMINOPHEN
     Indication: Pyrexia
     Dosage: 200 MILLIGRAM, QD
     Route: 048
     Dates: start: 20220206
  3. CALONAL [Concomitant]
     Active Substance: ACETAMINOPHEN
     Indication: COVID-19 treatment
  4. CEFTRIAXONE SODIUM [Concomitant]
     Active Substance: CEFTRIAXONE SODIUM
     Indication: COVID-19 treatment
     Dosage: 2 GRAM, QD
     Route: 041
     Dates: start: 20220207, end: 20220209
  5. ACETAMINOPHEN [Concomitant]
     Active Substance: ACETAMINOPHEN
     Indication: COVID-19 treatment
     Dosage: 50 MILLIGRAM, QD
     Route: 065
     Dates: start: 20220207
  6. SOLDEM 3A [Concomitant]
     Active Substance: CARBOHYDRATES\POTASSIUM CHLORIDE\SODIUM CHLORIDE\SODIUM LACTATE
     Indication: COVID-19 treatment
     Dosage: 1000 MILLILITER, QD
     Route: 051
     Dates: start: 20220207, end: 20220213
  7. MEROPENEM [Concomitant]
     Active Substance: MEROPENEM
     Indication: COVID-19
     Dosage: 1 GRAM, QD
     Route: 041
     Dates: start: 20220210, end: 20220211
  8. GASTER [Concomitant]
     Active Substance: FAMOTIDINE
     Indication: COVID-19
     Dosage: 20 MILLIGRAM, QD
     Route: 051
     Dates: start: 20220210, end: 20220211

REACTIONS (1)
  - COVID-19 [Fatal]
